FAERS Safety Report 4571213-3 (Version None)
Quarter: 2005Q1

REPORT INFORMATION
  Report Type: 
  Country: None (occurrence: None)
  Receive Date: 20050202
  Receipt Date: 20050113
  Transmission Date: 20050727
  Serious: Yes (Other)
  Sender: FDA-Public Use
  Company Number: US_0409105872

PATIENT
  Age: 47 Year
  Sex: Female

DRUGS (9)
  1. ZYPREXA [Suspect]
     Indication: DEPRESSION
     Dosage: 10 MG AT BEDTIME
     Dates: start: 19960101, end: 20030101
  2. EFFEXOR XR [Concomitant]
  3. ELAVIL [Concomitant]
  4. PROTONIX [Concomitant]
  5. PAMINE (HYOSCINE METHOBROMIDE) [Concomitant]
  6. MIRALAX [Concomitant]
  7. PREMARIN [Concomitant]
  8. LOTREL [Concomitant]
  9. DEPO-ESTRADIOL [Concomitant]

REACTIONS (65)
  - ABDOMINAL DISTENSION [None]
  - ACUTE SINUSITIS [None]
  - AEROPHAGIA [None]
  - ALANINE AMINOTRANSFERASE DECREASED [None]
  - ALLERGIC SINUSITIS [None]
  - ARTHRALGIA [None]
  - ASPARTATE AMINOTRANSFERASE DECREASED [None]
  - BACK PAIN [None]
  - BLOOD CHOLESTEROL INCREASED [None]
  - BLOOD CREATININE INCREASED [None]
  - BLOOD GLUCOSE INCREASED [None]
  - BLOOD PRESSURE INCREASED [None]
  - BLOOD SODIUM INCREASED [None]
  - BLOOD THYROID STIMULATING HORMONE INCREASED [None]
  - BRONCHITIS [None]
  - BRONCHITIS ACUTE [None]
  - CARDIAC DISORDER [None]
  - CHEST PAIN [None]
  - CONSTIPATION [None]
  - CORONARY ARTERY DISEASE [None]
  - CRYING [None]
  - DERMATITIS ALLERGIC [None]
  - DIABETES MELLITUS NON-INSULIN-DEPENDENT [None]
  - FALL [None]
  - FATIGUE [None]
  - FIBROCYSTIC BREAST DISEASE [None]
  - FLATULENCE [None]
  - FUNGAL INFECTION [None]
  - GASTROINTESTINAL HAEMORRHAGE [None]
  - GASTROOESOPHAGEAL REFLUX DISEASE [None]
  - HEADACHE [None]
  - HOT FLUSH [None]
  - HYPERLIPIDAEMIA [None]
  - HYPERTENSION [None]
  - INFLUENZA [None]
  - INJURY [None]
  - JOINT SPRAIN [None]
  - LACTOSE INTOLERANCE [None]
  - LARYNGITIS [None]
  - LICE INFESTATION [None]
  - LOSS OF CONSCIOUSNESS [None]
  - LOW DENSITY LIPOPROTEIN INCREASED [None]
  - MAJOR DEPRESSION [None]
  - MENOPAUSAL SYMPTOMS [None]
  - NECK PAIN [None]
  - NERVOUSNESS [None]
  - OSTEOARTHRITIS [None]
  - OSTEOPOROSIS [None]
  - OVARIAN CYST [None]
  - PELVIC PAIN [None]
  - PEPTIC ULCER [None]
  - PERIODONTAL DISEASE [None]
  - PSYCHOTIC DISORDER [None]
  - PYREXIA [None]
  - RHINITIS ALLERGIC [None]
  - SCLERAL DISORDER [None]
  - SCRATCH [None]
  - SINUSITIS [None]
  - TINEA PEDIS [None]
  - UPPER RESPIRATORY TRACT INFECTION [None]
  - URINARY TRACT INFECTION FUNGAL [None]
  - VAGINAL INFECTION [None]
  - VAGINITIS BACTERIAL [None]
  - VASCULAR OCCLUSION [None]
  - VIRAL UPPER RESPIRATORY TRACT INFECTION [None]
